FAERS Safety Report 4521112-8 (Version None)
Quarter: 2004Q4

REPORT INFORMATION
  Report Type: 
  Country: None (occurrence: None)
  Receive Date: 20041203
  Receipt Date: 20041130
  Transmission Date: 20050328
  Serious: Yes (Hospitalization)
  Sender: FDA-Public Use
  Company Number: 105477ISR

PATIENT
  Sex: Male

DRUGS (8)
  1. FLUOROURACIL [Suspect]
     Indication: RENAL CELL CARCINOMA STAGE UNSPECIFIED
     Dosage: INTRAVENOUS (NOS)
     Route: 042
  2. INTERFERON ALFA [Suspect]
     Indication: RENAL CELL CARCINOMA STAGE UNSPECIFIED
     Dosage: SUBCUTANEOUS
     Route: 058
     Dates: start: 20041011, end: 20041001
  3. INTERFERON ALFA [Suspect]
     Indication: RENAL CELL CARCINOMA STAGE UNSPECIFIED
     Dosage: SUBCUTANEOUS
     Route: 058
     Dates: start: 20041001, end: 20041101
  4. PROLEUKIN [Suspect]
     Dosage: SUBCUTANEOUS
     Route: 058
     Dates: start: 20041013, end: 20041001
  5. PROLEUKIN [Suspect]
     Dosage: SUBCUTANEOUS
     Route: 058
     Dates: start: 20041001, end: 20041101
  6. DICLOFENAC [Concomitant]
  7. CO-DYDRAMOL [Concomitant]
  8. METOCLOPRAMIDE HYDROCHLORIDE [Concomitant]

REACTIONS (10)
  - CONFUSIONAL STATE [None]
  - DEHYDRATION [None]
  - DIZZINESS [None]
  - FATIGUE [None]
  - HAEMOGLOBIN INCREASED [None]
  - HYPERCALCAEMIA [None]
  - INFECTION [None]
  - NEUTROPHIL COUNT DECREASED [None]
  - PLATELET COUNT DECREASED [None]
  - WHITE BLOOD CELL COUNT INCREASED [None]
